FAERS Safety Report 17234639 (Version 1)
Quarter: 2020Q1

REPORT INFORMATION
  Report Type: Spontaneous
  Country: FR (occurrence: FR)
  Receive Date: 20200106
  Receipt Date: 20200106
  Transmission Date: 20200409
  Serious: Yes (Other)
  Sender: FDA-Public Use
  Company Number: FR-SUN PHARMACEUTICAL INDUSTRIES LTD-2019RR-232268

PATIENT
  Sex: Female

DRUGS (17)
  1. VELBE [Suspect]
     Active Substance: VINBLASTINE SULFATE
     Indication: BENIGN LUNG NEOPLASM
     Dosage: UNK, WEEKLY
     Route: 065
     Dates: start: 201601, end: 201603
  2. NAVELBINE [Suspect]
     Active Substance: VINORELBINE TARTRATE
     Indication: BENIGN LUNG NEOPLASM
     Dosage: UNK
     Route: 065
     Dates: start: 201702, end: 201705
  3. VINORELBINE [Suspect]
     Active Substance: VINORELBINE TARTRATE
     Indication: BENIGN LUNG NEOPLASM
     Dosage: UNK
     Route: 065
     Dates: start: 201702, end: 201705
  4. TEMOZOLOMIDE. [Suspect]
     Active Substance: TEMOZOLOMIDE
     Dosage: UNK
     Route: 042
     Dates: start: 201801
  5. IFOSFAMIDE. [Suspect]
     Active Substance: IFOSFAMIDE
     Indication: BENIGN LUNG NEOPLASM
     Dosage: UNK
     Route: 065
     Dates: start: 201604, end: 201609
  6. METHOTREXATE. [Suspect]
     Active Substance: METHOTREXATE
     Indication: BENIGN LUNG NEOPLASM
     Dosage: UNK, WEEKLY
     Route: 065
     Dates: start: 201601, end: 201603
  7. VINCRISTINE [Suspect]
     Active Substance: VINCRISTINE
     Indication: BENIGN LUNG NEOPLASM
     Dosage: UNK
     Route: 065
     Dates: start: 201604, end: 201609
  8. TEMOZOLOMIDE. [Suspect]
     Active Substance: TEMOZOLOMIDE
     Indication: BENIGN LUNG NEOPLASM
     Dosage: UNK
     Route: 042
     Dates: start: 201604, end: 201609
  9. ENDOXAN [Suspect]
     Active Substance: CYCLOPHOSPHAMIDE
     Indication: BENIGN LUNG NEOPLASM
     Dosage: UNK
     Route: 065
     Dates: start: 201702, end: 201705
  10. CYCLOPHOSPHAMIDE. [Suspect]
     Active Substance: CYCLOPHOSPHAMIDE
     Indication: BENIGN LUNG NEOPLASM
     Dosage: UNK, QD
     Route: 065
     Dates: start: 201702, end: 201705
  11. TOPOTECAN [Suspect]
     Active Substance: TOPOTECAN HYDROCHLORIDE
     Indication: BENIGN LUNG NEOPLASM
     Dosage: UNK
     Route: 065
     Dates: start: 201801
  12. BEVACIZUMAB. [Suspect]
     Active Substance: BEVACIZUMAB
     Indication: BENIGN LUNG NEOPLASM
     Dosage: UNK
     Route: 042
  13. TEMOZOLOMIDE. [Suspect]
     Active Substance: TEMOZOLOMIDE
     Dosage: UNK
     Route: 042
     Dates: start: 201807
  14. ACTINOMYCIN D [Suspect]
     Active Substance: DACTINOMYCIN
     Indication: BENIGN LUNG NEOPLASM
     Dosage: UNK
     Route: 065
     Dates: start: 201604, end: 201609
  15. IRINOTECAN [Suspect]
     Active Substance: IRINOTECAN
     Indication: BENIGN LUNG NEOPLASM
     Dosage: UNK
     Route: 042
     Dates: start: 201604, end: 201609
  16. TOPOTECAN [Suspect]
     Active Substance: TOPOTECAN HYDROCHLORIDE
     Dosage: UNK
     Route: 042
     Dates: start: 201807
  17. YONDELIS [Suspect]
     Active Substance: TRABECTEDIN
     Indication: BENIGN LUNG NEOPLASM
     Dosage: UNK, 1 DOSE/3 WEEKS
     Route: 065
     Dates: start: 201705, end: 201711

REACTIONS (4)
  - Disease progression [Unknown]
  - Neutropenia [Unknown]
  - Nausea [Unknown]
  - Vomiting [Unknown]
